FAERS Safety Report 21535464 (Version 1)
Quarter: 2022Q4

REPORT INFORMATION
  Report Type: Spontaneous
  Country: US (occurrence: US)
  Receive Date: 20221101
  Receipt Date: 20221101
  Transmission Date: 20230112
  Serious: No
  Sender: FDA-Public Use
  Company Number: US-BioHaven Pharmaceuticals-2022BHV002277

PATIENT
  Sex: Female

DRUGS (1)
  1. NURTEC ODT [Suspect]
     Active Substance: RIMEGEPANT SULFATE
     Indication: Headache
     Route: 048
     Dates: start: 20220824

REACTIONS (3)
  - Incorrect route of product administration [Unknown]
  - Dizziness [Unknown]
  - Malaise [Unknown]

NARRATIVE: CASE EVENT DATE: 20220824
